FAERS Safety Report 18098735 (Version 2)
Quarter: 2020Q3

REPORT INFORMATION
  Report Type: Spontaneous
  Country: US (occurrence: US)
  Receive Date: 20200731
  Receipt Date: 20200802
  Transmission Date: 20201103
  Serious: No
  Sender: FDA-Public Use
  Company Number: US-BIOGEN-2020BI00905502

PATIENT
  Sex: Female

DRUGS (2)
  1. TECFIDERA [Suspect]
     Active Substance: DIMETHYL FUMARATE
     Indication: MULTIPLE SCLEROSIS
     Route: 048
     Dates: start: 20150428
  2. TECFIDERA [Suspect]
     Active Substance: DIMETHYL FUMARATE
     Route: 065
     Dates: start: 20150316, end: 20150910

REACTIONS (6)
  - Paraesthesia [Unknown]
  - Cognitive disorder [Unknown]
  - Feeling hot [Unknown]
  - Flushing [Unknown]
  - Diplopia [Unknown]
  - Gastrointestinal disorder [Unknown]
